FAERS Safety Report 9288465 (Version 1)
Quarter: 2013Q2

REPORT INFORMATION
  Report Type: Spontaneous
  Country: US (occurrence: US)
  Receive Date: 20130514
  Receipt Date: 20130514
  Transmission Date: 20140414
  Serious: No
  Sender: FDA-Public Use
  Company Number: US-OPTIMER PHARMACEUTICALS, INC.-20110033

PATIENT
  Sex: 0

DRUGS (5)
  1. DIFICID [Suspect]
     Indication: CLOSTRIDIUM DIFFICILE COLITIS
     Dosage: 200 MG, BID
     Route: 048
     Dates: start: 20110921, end: 20110930
  2. CULTURELLE [Concomitant]
     Dosage: UNK
     Dates: start: 201107
  3. FLORASTOR [Concomitant]
     Dosage: UNK
     Dates: start: 201107
  4. QUESTRAN [Concomitant]
     Dosage: UNK
     Dates: end: 20110920
  5. QUESTRAN [Concomitant]
     Dosage: UNK
     Dates: start: 201110

REACTIONS (6)
  - Pelvic discomfort [Recovered/Resolved]
  - Abdominal pain [Recovering/Resolving]
  - Flatulence [Unknown]
  - Mucous stools [Unknown]
  - Fatigue [Recovered/Resolved]
  - Back pain [Unknown]
